FAERS Safety Report 4669893-7 (Version None)
Quarter: 2005Q2

REPORT INFORMATION
  Report Type: 
  Country: None (occurrence: None)
  Receive Date: 20050523
  Receipt Date: 20050505
  Transmission Date: 20051028
  Serious: Yes (Disabling, Other)
  Sender: FDA-Public Use
  Company Number: 200504IM000158

PATIENT
  Age: 50 Year
  Sex: Male
  Weight: 93.441 kg

DRUGS (5)
  1. INFERGEN (INTERFERON ALFACON-1) [Suspect]
     Indication: HEPATITIS C
     Dosage: 15 UG, QD, SUBCUTANEOUS
     Route: 058
     Dates: start: 20041014, end: 20041027
  2. RIBAVIRIN [Suspect]
     Indication: HEPATITIS C
     Dosage: 1000 MG, QD, ORAL
     Route: 048
     Dates: start: 20041014, end: 20041108
  3. SYNTHROID [Concomitant]
  4. AMBIEN [Concomitant]
  5. PROTONIX [Concomitant]

REACTIONS (4)
  - ABASIA [None]
  - ASTHENIA [None]
  - FATIGUE [None]
  - THERAPY NON-RESPONDER [None]
